FAERS Safety Report 17834059 (Version 1)
Quarter: 2020Q2

REPORT INFORMATION
  Report Type: Spontaneous
  Country: AT (occurrence: AT)
  Receive Date: 20200528
  Receipt Date: 20200528
  Transmission Date: 20200714
  Serious: Yes (Other)
  Sender: FDA-Public Use
  Company Number: NVSC2020AT134075

PATIENT
  Sex: Female

DRUGS (4)
  1. ALPELISIB [Suspect]
     Active Substance: ALPELISIB
     Dosage: 250 MG, UNKNOWN
     Route: 048
  2. ALPELISIB [Suspect]
     Active Substance: ALPELISIB
     Indication: BREAST CANCER
     Dosage: 150 MG, BID
     Route: 048
     Dates: start: 20200423
  3. METFORMIN [Concomitant]
     Active Substance: METFORMIN HYDROCHLORIDE
     Indication: PRODUCT USED FOR UNKNOWN INDICATION
     Route: 065
  4. JARDIANCE [Concomitant]
     Active Substance: EMPAGLIFLOZIN
     Indication: PRODUCT USED FOR UNKNOWN INDICATION
     Route: 065

REACTIONS (1)
  - Hyperglycaemic hyperosmolar nonketotic syndrome [Recovering/Resolving]

NARRATIVE: CASE EVENT DATE: 20200423
